FAERS Safety Report 7416986-7 (Version None)
Quarter: 2011Q2

REPORT INFORMATION
  Report Type: 
  Country: None (occurrence: None)
  Receive Date: 20110415
  Receipt Date: 20110331
  Transmission Date: 20111010
  Serious: Yes (Other)
  Sender: FDA-Public Use
  Company Number: US-CELGENEUS-163-CCAZA-11040129

PATIENT

DRUGS (2)
  1. GEMTUZUMAB [Suspect]
     Dosage: 3 MILLIGRAM/SQ. METER
     Route: 065
  2. AZACITIDINE [Suspect]
     Dosage: 75 MILLIGRAM/SQ. METER

REACTIONS (4)
  - ACUTE MYOCARDIAL INFARCTION [None]
  - HYPERTENSIVE EMERGENCY [None]
  - FEBRILE NEUTROPENIA [None]
  - TRANSAMINASES INCREASED [None]
